FAERS Safety Report 8504678-2 (Version None)
Quarter: 2012Q3

REPORT INFORMATION
  Report Type: 
  Country: None (occurrence: None)
  Receive Date: 20120711
  Receipt Date: 20120709
  Transmission Date: 20120928
  Serious: Yes (Other)
  Sender: FDA-Public Use
  Company Number: CA-ROCHE-1064408

PATIENT
  Sex: Female

DRUGS (13)
  1. VEMURAFENIB [Suspect]
     Dates: start: 20120706
  2. NYSTATIN [Concomitant]
  3. ZOPLICONE (UNK INGREDIENTS) [Concomitant]
  4. VEMURAFENIB [Suspect]
     Indication: METASTATIC MALIGNANT MELANOMA
     Route: 048
     Dates: start: 20120101
  5. SENOKOT [Concomitant]
  6. DEXAMETHASONE [Concomitant]
  7. PANTOPRAZOLE [Concomitant]
  8. VEMURAFENIB [Suspect]
     Dates: start: 20120501
  9. MULTI-VITAMIN [Concomitant]
  10. WELLBUTRIN [Concomitant]
  11. VERAPAMIL [Concomitant]
  12. RABEPRAZOLE SODIUM [Concomitant]
  13. MORPHINE [Concomitant]

REACTIONS (17)
  - CONFUSIONAL STATE [None]
  - RASH GENERALISED [None]
  - DYSPHEMIA [None]
  - FATIGUE [None]
  - HYPOAESTHESIA [None]
  - PAIN [None]
  - NASOPHARYNGITIS [None]
  - HEADACHE [None]
  - MALAISE [None]
  - DRY SKIN [None]
  - VISION BLURRED [None]
  - SKIN EXFOLIATION [None]
  - TREMOR [None]
  - HYPERAESTHESIA [None]
  - INFLUENZA [None]
  - TENDONITIS [None]
  - PAIN IN EXTREMITY [None]
